FAERS Safety Report 6573822-9 (Version None)
Quarter: 2010Q1

REPORT INFORMATION
  Report Type: 
  Country: None (occurrence: None)
  Receive Date: 20100204
  Receipt Date: 20100204
  Transmission Date: 20100710
  Serious: Yes (Life-Threatening)
  Sender: FDA-Public Use
  Company Number: None

PATIENT
  Sex: Female
  Weight: 76.6579 kg

DRUGS (5)
  1. CITALOPRAM HYDROBROMIDE [Suspect]
     Indication: INSOMNIA
     Dosage: 1 AT BEDTIME PO
     Route: 048
     Dates: start: 20100120, end: 20100120
  2. DIOVAN [Suspect]
  3. SIMVASTATIN [Suspect]
  4. ATENOLOL [Suspect]
  5. LEVOXYL [Suspect]

REACTIONS (4)
  - BLOOD PRESSURE SYSTOLIC INCREASED [None]
  - CHEST DISCOMFORT [None]
  - HYPOAESTHESIA [None]
  - SENSATION OF HEAVINESS [None]
